FAERS Safety Report 9793077 (Version 1)
Quarter: 2013Q4

REPORT INFORMATION
  Report Type: Spontaneous
  Country: US (occurrence: None)
  Receive Date: 20131231
  Receipt Date: 20131231
  Transmission Date: 20140711
  Serious: Yes (Hospitalization)
  Sender: FDA-Public Use
  Company Number: None

PATIENT
  Age: 59 Year
  Sex: Female
  Weight: 66 kg

DRUGS (2)
  1. CARBOPLATIN [Suspect]
     Dates: end: 20130617
  2. TOPOTECAN [Suspect]
     Dates: end: 20130617

REACTIONS (4)
  - Febrile neutropenia [None]
  - Diarrhoea [None]
  - Klebsiella infection [None]
  - Bacteraemia [None]
